FAERS Safety Report 18297771 (Version 4)
Quarter: 2021Q3

REPORT INFORMATION
  Report Type: Spontaneous
  Country: US (occurrence: US)
  Receive Date: 20200923
  Receipt Date: 20210811
  Transmission Date: 20211014
  Serious: Yes (Hospitalization, Other)
  Sender: FDA-Public Use
  Company Number: US-SA-2020SA253668

PATIENT
  Age: 56 Year
  Sex: Male

DRUGS (14)
  1. ZANTAC [Suspect]
     Active Substance: RANITIDINE HYDROCHLORIDE
     Dosage: UNK
     Dates: start: 2004, end: 2019
  2. VITAMIN E NOS [Concomitant]
     Active Substance: .ALPHA.-TOCOPHEROL
     Dosage: UNK, QD
     Route: 048
  3. VITAMIN C [Concomitant]
     Active Substance: ASCORBIC ACID
     Dosage: 2 DF, QD
     Route: 048
  4. CRANBERRY FRUIT [Concomitant]
     Dosage: UNK, QD
     Route: 048
  5. ZESTRIL [Concomitant]
     Active Substance: LISINOPRIL
     Route: 048
  6. GLYCOLAX [Concomitant]
     Active Substance: POLYETHYLENE GLYCOL 3350
     Dosage: 17 G, QD
     Route: 048
  7. VITAMIN D3 [Concomitant]
     Active Substance: CHOLECALCIFEROL
  8. PRINIVIL [Concomitant]
     Active Substance: LISINOPRIL
     Route: 048
  9. MELOXICAM. [Concomitant]
     Active Substance: MELOXICAM
  10. COENZYME Q10 [Concomitant]
     Active Substance: DIETARY SUPPLEMENT\UBIDECARENONE
  11. SENNA [SENNOSIDE A+B CALCIUM] [Concomitant]
     Dosage: UNK, PRN
     Route: 048
  12. CRESTOR [Concomitant]
     Active Substance: ROSUVASTATIN CALCIUM
     Dosage: 40 MG, QD
     Route: 048
  13. ASPIRIN [ACETYLSALICYLIC ACID] [Concomitant]
     Active Substance: ASPIRIN
     Dosage: 80 MG, QD
     Route: 048
  14. FISH OIL [Concomitant]
     Active Substance: FISH OIL
     Dosage: 12.5 MG, QD
     Route: 048

REACTIONS (15)
  - Prostate cancer [Recovering/Resolving]
  - Pyelonephritis [Recovering/Resolving]
  - Post procedural haematuria [Unknown]
  - Renal impairment [Recovering/Resolving]
  - Dysuria [Recovering/Resolving]
  - Bladder transitional cell carcinoma [Recovering/Resolving]
  - Sepsis [Unknown]
  - Stenosis of vesicourethral anastomosis [Recovered/Resolved]
  - Metastases to kidney [Unknown]
  - Renal failure [Unknown]
  - Urinary tract obstruction [Recovering/Resolving]
  - Hydronephrosis [Recovering/Resolving]
  - Anxiety [Unknown]
  - Computerised tomogram abnormal [Unknown]
  - Flank pain [Recovering/Resolving]

NARRATIVE: CASE EVENT DATE: 2020
